FAERS Safety Report 25002704 (Version 1)
Quarter: 2025Q1

REPORT INFORMATION
  Report Type: Spontaneous
  Country: IL (occurrence: IL)
  Receive Date: 20250224
  Receipt Date: 20250224
  Transmission Date: 20250408
  Serious: Yes (Other)
  Sender: TAKEDA
  Company Number: IL-JNJFOC-20250242896

PATIENT
  Age: 62 Year
  Sex: Female

DRUGS (2)
  1. VELCADE [Suspect]
     Active Substance: BORTEZOMIB
     Indication: Amyloidosis
  2. DEXAMETHASONE [Suspect]
     Active Substance: DEXAMETHASONE
     Indication: Amyloidosis

REACTIONS (2)
  - Drug ineffective [Unknown]
  - Off label use [Unknown]
